FAERS Safety Report 21656603 (Version 1)
Quarter: 2022Q4

REPORT INFORMATION
  Report Type: Spontaneous
  Country: JP (occurrence: JP)
  Receive Date: 20221129
  Receipt Date: 20221129
  Transmission Date: 20230112
  Serious: Yes (Hospitalization)
  Sender: FDA-Public Use
  Company Number: JP-MYLANLABS-2022M1130063

PATIENT
  Sex: Male

DRUGS (2)
  1. EPLERENONE [Suspect]
     Active Substance: EPLERENONE
     Indication: Product used for unknown indication
     Dosage: 50 MILLIGRAM
     Route: 048
  2. SPIRONOLACTONE [Suspect]
     Active Substance: SPIRONOLACTONE
     Indication: Product used for unknown indication
     Dosage: 50 MILLIGRAM
     Route: 048

REACTIONS (2)
  - Hospitalisation [Unknown]
  - Contraindicated product administered [Unknown]
